FAERS Safety Report 8048059-7 (Version None)
Quarter: 2012Q1

REPORT INFORMATION
  Report Type: 
  Country: None (occurrence: None)
  Receive Date: 20120117
  Receipt Date: 20120109
  Transmission Date: 20120608
  Serious: No
  Sender: FDA-Public Use
  Company Number: US-BIOGENIDEC-2012BI001100

PATIENT
  Sex: Male

DRUGS (2)
  1. AVONEX [Suspect]
     Indication: MULTIPLE SCLEROSIS
     Route: 030
     Dates: start: 20081001
  2. ACETAMINOPHEN [Concomitant]
     Indication: PREMEDICATION

REACTIONS (2)
  - INJECTION SITE ATROPHY [None]
  - INFLUENZA LIKE ILLNESS [None]
